FAERS Safety Report 25581784 (Version 2)
Quarter: 2025Q3

REPORT INFORMATION
  Report Type: Spontaneous
  Country: TR (occurrence: TR)
  Receive Date: 20250719
  Receipt Date: 20250721
  Transmission Date: 20251020
  Serious: Yes (Life-Threatening, Hospitalization)
  Sender: IPSEN BIOPHARMACEUTICALS, INC.
  Company Number: TR-IPSEN Group, Research and Development-2025-17341

PATIENT
  Age: 34 Year
  Sex: Female
  Weight: 48 kg

DRUGS (5)
  1. DYSPORT [Suspect]
     Active Substance: ABOBOTULINUMTOXINA
     Indication: Skin wrinkling
     Dates: start: 20250509, end: 20250509
  2. DYSPORT [Suspect]
     Active Substance: ABOBOTULINUMTOXINA
     Indication: Hyperhidrosis
  3. DYSPORT [Suspect]
     Active Substance: ABOBOTULINUMTOXINA
     Indication: Skin wrinkling
  4. DYSPORT [Suspect]
     Active Substance: ABOBOTULINUMTOXINA
     Indication: Off label use
  5. DYSPORT [Suspect]
     Active Substance: ABOBOTULINUMTOXINA
     Indication: Skin wrinkling

REACTIONS (3)
  - Pyrexia [Recovered/Resolved]
  - Neuromuscular toxicity [Unknown]
  - Off label use [Unknown]

NARRATIVE: CASE EVENT DATE: 20250509
